FAERS Safety Report 5742145-X (Version None)
Quarter: 2008Q2

REPORT INFORMATION
  Report Type: 
  Country: None (occurrence: None)
  Receive Date: 20080514
  Receipt Date: 20080514
  Transmission Date: 20081010
  Serious: No
  Sender: FDA-Public Use
  Company Number: None

PATIENT
  Age: 76 Year
  Sex: Female

DRUGS (1)
  1. DIGITEK 0.125MG [Suspect]
     Indication: HEART RATE
     Dosage: TAKE 1 TABLET DAILY

REACTIONS (4)
  - BLOOD PRESSURE DECREASED [None]
  - FATIGUE [None]
  - HEART RATE DECREASED [None]
  - PARAESTHESIA [None]
